FAERS Safety Report 25734166 (Version 1)
Quarter: 2025Q3

REPORT INFORMATION
  Report Type: Report from Study
  Country: US (occurrence: US)
  Receive Date: 20250828
  Receipt Date: 20250828
  Transmission Date: 20251021
  Serious: Yes (Disabling, Other)
  Sender: ABBVIE
  Company Number: US-ABBVIE-5434559

PATIENT
  Age: 61 Year
  Sex: Male

DRUGS (2)
  1. HUMIRA [Suspect]
     Active Substance: ADALIMUMAB
     Indication: Product used for unknown indication
     Route: 058
     Dates: start: 20230707
  2. HUMIRA [Suspect]
     Active Substance: ADALIMUMAB
     Route: 058

REACTIONS (12)
  - Disability [Unknown]
  - Memory impairment [Unknown]
  - Road traffic accident [Unknown]
  - Injury associated with device [Unknown]
  - Device use error [Unknown]
  - Accidental exposure to product [Unknown]
  - Constipation [Unknown]
  - Eye irritation [Unknown]
  - Illness [Unknown]
  - Cataract [Unknown]
  - Sinusitis [Unknown]
  - Blindness [Unknown]

NARRATIVE: CASE EVENT DATE: 20230101
